FAERS Safety Report 4639848-7 (Version None)
Quarter: 2005Q2

REPORT INFORMATION
  Report Type: 
  Country: None (occurrence: None)
  Receive Date: 20050415
  Receipt Date: 20050415
  Transmission Date: 20051028
  Serious: Yes (Death)
  Sender: FDA-Public Use
  Company Number: None

PATIENT
  Sex: Male

DRUGS (3)
  1. THALLOUS CHLORIDE TL 201 [Suspect]
     Indication: CARDIAC STRESS TEST
  2. TECHNETIUM TC-99M TETROFOSMIN [Suspect]
     Indication: CARDIAC STRESS TEST
  3. DIPYRIDAMOLE [Suspect]
     Indication: CARDIAC STRESS TEST

REACTIONS (3)
  - ANGINA PECTORIS [None]
  - PAIN IN JAW [None]
  - SUDDEN DEATH [None]
